FAERS Safety Report 8951677 (Version 1)
Quarter: 2012Q4

REPORT INFORMATION
  Report Type: 
  Country: GR (occurrence: GR)
  Receive Date: 20121204
  Receipt Date: 20121204
  Transmission Date: 20130627
  Serious: Yes (Other)
  Sender: FDA-Public Use
  Company Number: PHHY2012GR110443

PATIENT
  Age: 65 Year
  Sex: Female

DRUGS (1)
  1. LEFLUNOMIDE [Suspect]
     Indication: RHEUMATOID ARTHRITIS

REACTIONS (4)
  - Bronchopulmonary aspergillosis [Unknown]
  - Cough [Unknown]
  - Pulmonary mass [Unknown]
  - Pulmonary granuloma [Unknown]
